FAERS Safety Report 7863477-5 (Version None)
Quarter: 2011Q4

REPORT INFORMATION
  Report Type: 
  Country: None (occurrence: None)
  Receive Date: 20111027
  Receipt Date: 20101206
  Transmission Date: 20120403
  Serious: No
  Sender: FDA-Public Use
  Company Number: US-AMGEN-USASP2010007825

PATIENT
  Age: 28 Year
  Sex: Female

DRUGS (1)
  1. ENBREL [Suspect]
     Indication: RHEUMATOID ARTHRITIS
     Dates: start: 20091212

REACTIONS (6)
  - NECK PAIN [None]
  - TOOTH IMPACTED [None]
  - POST PROCEDURAL INFECTION [None]
  - SINUSITIS [None]
  - HEADACHE [None]
  - INJECTION SITE PAIN [None]
